APPROVED DRUG PRODUCT: BACITRACIN ZINC-NEOMYCIN SULFATE-POLYMYXIN B SULFATE
Active Ingredient: BACITRACIN ZINC; NEOMYCIN SULFATE; POLYMYXIN B SULFATE
Strength: 400 UNITS/GM;EQ 3.5MG BASE/GM;10,000 UNITS/GM
Dosage Form/Route: OINTMENT;OPHTHALMIC
Application: A062386 | Product #001
Applicant: PHARMAFAIR INC
Approved: Sep 9, 1982 | RLD: No | RS: No | Type: DISCN